FAERS Safety Report 7796765-1 (Version None)
Quarter: 2011Q4

REPORT INFORMATION
  Report Type: 
  Country: None (occurrence: None)
  Receive Date: 20111005
  Receipt Date: 20090610
  Transmission Date: 20120403
  Serious: Yes (Hospitalization)
  Sender: FDA-Public Use
  Company Number: DE-RANBAXY-2009US-46356

PATIENT

DRUGS (3)
  1. CIPROFLOXACIN [Suspect]
     Indication: PRODUCT USED FOR UNKNOWN INDICATION
     Dosage: 1 G DAILY
     Route: 048
     Dates: start: 20090110, end: 20090121
  2. PANTOPRAZOLE SODIUM [Suspect]
     Indication: PRODUCT USED FOR UNKNOWN INDICATION
     Dosage: 40 MG, UNK
     Route: 048
     Dates: start: 20090110, end: 20090121
  3. AMOXICILLIN TRIHYDRATE [Suspect]
     Indication: PRODUCT USED FOR UNKNOWN INDICATION
     Dosage: UNK
     Route: 048
     Dates: start: 20090110, end: 20090121

REACTIONS (6)
  - MUSCLE SPASMS [None]
  - FEELING DRUNK [None]
  - FEELING ABNORMAL [None]
  - ERYTHROMELALGIA [None]
  - PHOTOPHOBIA [None]
  - TENDON DISORDER [None]
